FAERS Safety Report 8484504-0 (Version None)
Quarter: 2012Q3

REPORT INFORMATION
  Report Type: 
  Country: None (occurrence: None)
  Receive Date: 20120703
  Receipt Date: 20120622
  Transmission Date: 20120928
  Serious: Yes (Other)
  Sender: FDA-Public Use
  Company Number: BE-NOVOPROD-352030

PATIENT
  Age: 2 Year
  Sex: Male
  Weight: 11 kg

DRUGS (5)
  1. EPREX [Concomitant]
     Indication: ANAEMIA
     Dosage: 4000 IU, QW
     Route: 058
  2. SODIUM CHLORIDE [Concomitant]
     Indication: RENAL DISORDER
     Dosage: 15 ML, QD
     Route: 048
  3. CALCIUM CARBONATE [Concomitant]
     Indication: RENAL FAILURE
     Route: 048
  4. NORDITROPIN [Suspect]
     Indication: PRODUCT USED FOR UNKNOWN INDICATION
     Dosage: 0.6 MG, QD
     Route: 058
     Dates: start: 20111201
  5. D-CURE [Concomitant]
     Dosage: 16 DROPS
     Route: 048

REACTIONS (1)
  - HYPOCALCAEMIA [None]
